FAERS Safety Report 8326617-X (Version None)
Quarter: 2012Q2

REPORT INFORMATION
  Report Type: 
  Country: None (occurrence: None)
  Receive Date: 20120501
  Receipt Date: 20120423
  Transmission Date: 20120825
  Serious: Yes (Hospitalization)
  Sender: FDA-Public Use
  Company Number: US-ASTRAZENECA-2011SE56248

PATIENT
  Age: 71 Year
  Sex: Female

DRUGS (1)
  1. NEXIUM [Suspect]
     Route: 048

REACTIONS (8)
  - VOMITING [None]
  - APHAGIA [None]
  - CERUMEN IMPACTION [None]
  - INTENTIONAL DRUG MISUSE [None]
  - HYPOACUSIS [None]
  - REGURGITATION [None]
  - DEAFNESS [None]
  - MALAISE [None]
